FAERS Safety Report 10694374 (Version 3)
Quarter: 2015Q1

REPORT INFORMATION
  Report Type: Spontaneous
  Country: US (occurrence: US)
  Receive Date: 20150107
  Receipt Date: 20150219
  Transmission Date: 20150721
  Serious: No
  Sender: FDA-Public Use
  Company Number: US-009507513-1412USA013779

PATIENT
  Age: 42 Year
  Sex: Female
  Weight: 69.39 kg

DRUGS (9)
  1. REBETOL [Suspect]
     Active Substance: RIBAVIRIN
     Dosage: 600 (UNITS NOT REPORTED)/ AM AND 400 (UNITS NOT REPORTED)/PM
     Route: 048
     Dates: start: 20141101, end: 20150117
  2. CELEXA [Concomitant]
     Active Substance: CITALOPRAM HYDROBROMIDE
  3. SOVALDI [Concomitant]
     Active Substance: SOFOSBUVIR
     Dosage: 400 MG, QD
     Route: 048
     Dates: start: 20141101, end: 20150117
  4. SEROQUEL [Concomitant]
     Active Substance: QUETIAPINE FUMARATE
  5. ATIVAN [Concomitant]
     Active Substance: LORAZEPAM
  6. TRAMADOL HYDROCHLORIDE. [Concomitant]
     Active Substance: TRAMADOL HYDROCHLORIDE
  7. PEGINTRON [Suspect]
     Active Substance: PEGINTERFERON ALFA-2B
     Indication: HEPATITIS C
     Dosage: STRENGTH: 120(UNIT UNKNOWN)
     Route: 058
     Dates: start: 20141101, end: 20150117
  8. PROPRANOLOL HYDROCHLORIDE. [Concomitant]
     Active Substance: PROPRANOLOL HYDROCHLORIDE
  9. ZOFRAN [Concomitant]
     Active Substance: ONDANSETRON HYDROCHLORIDE
     Dosage: 8 MG, Q8H
     Route: 048

REACTIONS (11)
  - Mood swings [Recovered/Resolved]
  - Injection site pruritus [Not Recovered/Not Resolved]
  - Injection site erythema [Not Recovered/Not Resolved]
  - Injection site pain [Not Recovered/Not Resolved]
  - Nasopharyngitis [Not Recovered/Not Resolved]
  - Irritability [Recovered/Resolved]
  - Arthralgia [Recovered/Resolved]
  - Insomnia [Recovered/Resolved]
  - Nausea [Recovered/Resolved]
  - Headache [Recovered/Resolved]
  - Product quality issue [Unknown]

NARRATIVE: CASE EVENT DATE: 2014
